FAERS Safety Report 10927898 (Version 2)
Quarter: 2015Q2

REPORT INFORMATION
  Report Type: Spontaneous
  Country: JP (occurrence: JP)
  Receive Date: 20150319
  Receipt Date: 20150504
  Transmission Date: 20150821
  Serious: Yes (Hospitalization, Other)
  Sender: FDA-Public Use
  Company Number: JP-BRISTOL-MYERS SQUIBB COMPANY-BMS-2015-016149

PATIENT
  Age: 68 Year
  Sex: Female
  Weight: 41 kg

DRUGS (1)
  1. ORENCIA [Suspect]
     Active Substance: ABATACEPT
     Indication: RHEUMATOID ARTHRITIS
     Dosage: 500 MG, QMO
     Route: 041
     Dates: start: 20141112, end: 20150218

REACTIONS (2)
  - White blood cell count increased [Unknown]
  - Fractured sacrum [Unknown]

NARRATIVE: CASE EVENT DATE: 20150221
